FAERS Safety Report 14135970 (Version 3)
Quarter: 2017Q4

REPORT INFORMATION
  Report Type: Spontaneous
  Country: SE (occurrence: SE)
  Receive Date: 20171027
  Receipt Date: 20171227
  Transmission Date: 20180321
  Serious: Yes (Hospitalization)
  Sender: FDA-Public Use
  Company Number: SE-ELI_LILLY_AND_COMPANY-SE201709006587

PATIENT
  Age: 51 Year
  Sex: Male

DRUGS (5)
  1. PROPAVAN [Concomitant]
     Active Substance: PROPIOMAZINE
     Indication: SLEEP DISORDER
     Dosage: 1 DF, DAILY
     Route: 065
  2. LEVAXIN [Concomitant]
     Active Substance: LEVOTHYROXINE SODIUM
     Dosage: 100 MG, DAILY
     Route: 065
  3. LITAREX                            /00033708/ [Concomitant]
     Indication: DEPRESSED MOOD
     Dosage: 42 MG, UNKNOWN
     Route: 065
  4. ZYPADHERA [Suspect]
     Active Substance: OLANZAPINE PAMOATE
     Indication: PRODUCT USED FOR UNKNOWN INDICATION
     Dosage: UNK, UNKNOWN
     Route: 030
     Dates: start: 2015
  5. IMOVANE [Concomitant]
     Active Substance: ZOPICLONE
     Indication: SLEEP DISORDER
     Dosage: 7.5 MG, DAILY
     Route: 065

REACTIONS (6)
  - Dizziness [Unknown]
  - Aggression [Unknown]
  - Fall [Unknown]
  - Dysarthria [Unknown]
  - Confusional state [Unknown]
  - Movement disorder [Unknown]

NARRATIVE: CASE EVENT DATE: 20170914
